FAERS Safety Report 6696405-9 (Version None)
Quarter: 2010Q2

REPORT INFORMATION
  Report Type: 
  Country: None (occurrence: None)
  Receive Date: 20100426
  Receipt Date: 20100419
  Transmission Date: 20101027
  Serious: Yes (Hospitalization)
  Sender: FDA-Public Use
  Company Number: US-GILEAD-2010-0028567

PATIENT
  Sex: Female
  Weight: 59.928 kg

DRUGS (3)
  1. LETAIRIS [Suspect]
     Indication: PULMONARY ARTERIAL HYPERTENSION
     Route: 048
     Dates: start: 20091013, end: 20100129
  2. LETAIRIS [Suspect]
     Route: 048
     Dates: start: 20090608, end: 20091012
  3. COUMADIN [Concomitant]
     Dates: end: 20100208

REACTIONS (2)
  - ANAEMIA [None]
  - GASTROINTESTINAL HAEMORRHAGE [None]
